FAERS Safety Report 12278396 (Version 5)
Quarter: 2016Q2

REPORT INFORMATION
  Report Type: Spontaneous
  Country: AR (occurrence: AR)
  Receive Date: 20160418
  Receipt Date: 20160617
  Transmission Date: 20160815
  Serious: Yes (Death, Hospitalization, Disabling, Congenital Anomaly, Other)
  Sender: FDA-Public Use
  Company Number: AR-AMGEN-ARGSL2016045142

PATIENT
  Age: 35 Year
  Sex: Female
  Weight: 65 kg

DRUGS (8)
  1. KYPROLIS [Suspect]
     Active Substance: CARFILZOMIB
     Dosage: 27 MG/M2, EV
     Route: 065
     Dates: start: 20160119, end: 20160203
  2. DEXAMETHASONE. [Concomitant]
     Active Substance: DEXAMETHASONE
     Indication: PLASMA CELL MYELOMA
     Dosage: 8 MG, QD EV
     Route: 065
     Dates: start: 20151027, end: 20160223
  3. MORPHINE [Concomitant]
     Active Substance: MORPHINE
     Dosage: 10 MG, EV
     Route: 065
  4. KYPROLIS [Suspect]
     Active Substance: CARFILZOMIB
     Indication: PLASMA CELL MYELOMA
     Dosage: 20 MG/M2, DAY 1 , 2, 7, 8, 9, 15 AND 16 EV
     Route: 065
     Dates: start: 20151027, end: 20151111
  5. KYPROLIS [Suspect]
     Active Substance: CARFILZOMIB
     Dosage: 27 MG/M2
     Route: 042
     Dates: start: 20160216, end: 20160223
  6. COTRIMOXAZOLE [Concomitant]
     Active Substance: SULFAMETHOXAZOLE\TRIMETHOPRIM
     Dosage: 800/160 MG, QD
     Route: 048
  7. KYPROLIS [Suspect]
     Active Substance: CARFILZOMIB
     Dosage: 27 MG/M2, EV
     Route: 065
     Dates: start: 20151124, end: 20151210
  8. OMEPRAZOLE. [Concomitant]
     Active Substance: OMEPRAZOLE
     Dosage: 20 MG, QD
     Route: 048

REACTIONS (9)
  - Somnolence [Unknown]
  - Vertebral artery thrombosis [Recovered/Resolved]
  - VIth nerve paralysis [Recovered/Resolved]
  - Superior sagittal sinus thrombosis [Recovered/Resolved]
  - Disease progression [Fatal]
  - Headache [Recovering/Resolving]
  - Diplegia [Unknown]
  - Irritability [Unknown]
  - Incorrect route of drug administration [Unknown]

NARRATIVE: CASE EVENT DATE: 20151027
